FAERS Safety Report 5848812-1 (Version None)
Quarter: 2008Q3

REPORT INFORMATION
  Report Type: 
  Country: None (occurrence: None)
  Receive Date: 20080818
  Receipt Date: 20080806
  Transmission Date: 20090109
  Serious: Yes (Hospitalization, Other)
  Sender: FDA-Public Use
  Company Number: US-PFIZER INC-2005132317

PATIENT
  Sex: Female
  Weight: 51 kg

DRUGS (4)
  1. NEURONTIN [Suspect]
     Indication: BACK PAIN
  2. NEURONTIN [Suspect]
     Indication: MOVEMENT DISORDER
  3. NEURONTIN [Suspect]
     Indication: SLEEP DISORDER
  4. TRIAMCINOLONE [Concomitant]

REACTIONS (5)
  - ALCOHOL POISONING [None]
  - DEPRESSION [None]
  - DRUG INEFFECTIVE [None]
  - INTENTIONAL OVERDOSE [None]
  - SUICIDE ATTEMPT [None]
